FAERS Safety Report 9023564 (Version 1)
Quarter: 2013Q1

REPORT INFORMATION
  Report Type: Spontaneous
  Country: SE (occurrence: SE)
  Receive Date: 20130121
  Receipt Date: 20130121
  Transmission Date: 20140127
  Serious: Yes (Other)
  Sender: FDA-Public Use
  Company Number: PHHY2013SE004955

PATIENT
  Age: 50 Year
  Sex: Female

DRUGS (4)
  1. RITALINA [Suspect]
     Dosage: UNK UKN, UNK
     Dates: start: 200609, end: 200803
  2. RITALINA [Suspect]
     Dosage: UNK UKN, UNK
     Dates: end: 201210
  3. CONCERTA [Suspect]
     Dosage: UNK UKN, UNK
     Dates: start: 200803, end: 200805
  4. EQUASYM [Suspect]
     Dosage: UNK UKN, UNK

REACTIONS (1)
  - Cardiomyopathy [Not Recovered/Not Resolved]
